FAERS Safety Report 4355913-6 (Version None)
Quarter: 2004Q2

REPORT INFORMATION
  Report Type: 
  Country: None (occurrence: None)
  Receive Date: 20040505
  Receipt Date: 20040420
  Transmission Date: 20050107
  Serious: Yes (Disabling, Other)
  Sender: FDA-Public Use
  Company Number: 2004-115400-NL

PATIENT
  Age: 77 Year
  Sex: Male
  Weight: 86 kg

DRUGS (5)
  1. TICE BCG [Suspect]
     Indication: BLADDER CANCER
     Dosage: CFU INTRAVESICAL, 1/3 DOSE
     Route: 043
     Dates: start: 20020327, end: 20030527
  2. TICE BCG [Suspect]
     Indication: BLADDER CANCER
     Dosage: CFU INTRAVESICAL
     Route: 043
     Dates: start: 20031106, end: 20031120
  3. INTRON A [Suspect]
     Indication: BLADDER CANCER
     Dosage: 50 IU INTRAVESICAL
     Route: 043
     Dates: start: 20020327, end: 20030527
  4. INTRON A [Suspect]
     Indication: BLADDER CANCER
     Dosage: 0 IU WEEKLY INTRAVESICAL
     Route: 043
     Dates: start: 20031106, end: 20031120
  5. VITAMINS/MINERALS/DIETARY SUPPLEMENTS [Suspect]
     Indication: BLADDER CANCER
     Dosage: DF

REACTIONS (3)
  - ACUTE MYELOID LEUKAEMIA [None]
  - MYELODYSPLASTIC SYNDROME [None]
  - WHITE BLOOD CELL COUNT DECREASED [None]
